FAERS Safety Report 6793678-9 (Version None)
Quarter: 2010Q2

REPORT INFORMATION
  Report Type: 
  Country: None (occurrence: None)
  Receive Date: 20100624
  Receipt Date: 20090319
  Transmission Date: 20101027
  Serious: No
  Sender: FDA-Public Use
  Company Number: US-PFIZER INC-2009151626

PATIENT
  Sex: Male
  Weight: 86.182 kg

DRUGS (2)
  1. CADUET [Suspect]
     Indication: HYPERTENSION
     Dosage: 5/10 MG
     Route: 048
     Dates: start: 20081101, end: 20090101
  2. CADUET [Suspect]
     Indication: BLOOD CHOLESTEROL INCREASED

REACTIONS (2)
  - LABORATORY TEST ABNORMAL [None]
  - MYALGIA [None]
